FAERS Safety Report 20223819 (Version 1)
Quarter: 2021Q4

REPORT INFORMATION
  Report Type: Spontaneous
  Country: US (occurrence: US)
  Receive Date: 20211223
  Receipt Date: 20211223
  Transmission Date: 20220303
  Serious: Yes (Other)
  Sender: FDA-Public Use
  Company Number: US-SA-SAC20211222001024

PATIENT
  Age: 71 Year
  Sex: Female

DRUGS (16)
  1. AUBAGIO [Suspect]
     Active Substance: TERIFLUNOMIDE
     Indication: Multiple sclerosis
     Dosage: 7 MG, QD
     Route: 048
  2. LEVSIN [Concomitant]
     Active Substance: HYOSCYAMINE SULFATE
     Dosage: UNK MG
  3. SOL [Concomitant]
     Dosage: 0.5 MG
  4. ONDANSETRON [Concomitant]
     Active Substance: ONDANSETRON
     Dosage: 4 MG
  5. PANTOPRAZOLE [Concomitant]
     Active Substance: PANTOPRAZOLE
  6. METOPROLOL TARTRATE [Concomitant]
     Active Substance: METOPROLOL TARTRATE
  7. BIOTIN [Concomitant]
     Active Substance: BIOTIN
  8. CYMBALTA [Concomitant]
     Active Substance: DULOXETINE HYDROCHLORIDE
     Dosage: 40MG
  9. GABAPENTIN [Concomitant]
     Active Substance: GABAPENTIN
  10. KLONOPIN [Concomitant]
     Active Substance: CLONAZEPAM
  11. LEVOTHYROXINE SODIUM [Concomitant]
     Active Substance: LEVOTHYROXINE SODIUM
  12. PROZAC [Concomitant]
     Active Substance: FLUOXETINE HYDROCHLORIDE
  13. CYANOCOBALAMIN [Concomitant]
     Active Substance: CYANOCOBALAMIN
  14. VITAMIN D NOS [Concomitant]
     Active Substance: VITAMIN D NOS
  15. BIFIDOBACTERIUM ANIMALIS LACTIS [Concomitant]
     Active Substance: BIFIDOBACTERIUM ANIMALIS LACTIS
  16. COENZYME Q10 [Concomitant]
     Active Substance: DIETARY SUPPLEMENT\UBIDECARENONE

REACTIONS (4)
  - Haematochezia [Unknown]
  - Illness [Unknown]
  - Pain [Unknown]
  - Diarrhoea [Unknown]
